FAERS Safety Report 4648247-3 (Version None)
Quarter: 2005Q2

REPORT INFORMATION
  Report Type: 
  Country: None (occurrence: None)
  Receive Date: 20050426
  Receipt Date: 20050413
  Transmission Date: 20051028
  Serious: Yes (Hospitalization)
  Sender: FDA-Public Use
  Company Number: 2005059667

PATIENT
  Age: 53 Year
  Sex: Female
  Weight: 80.7403 kg

DRUGS (6)
  1. BEXTRA [Suspect]
     Indication: ARTHRITIS
     Dosage: 10 MG (20 MG, 1 IN 1 D), ORAL
     Route: 048
     Dates: start: 20031201
  2. PREDNISONE [Concomitant]
  3. LEVOTHYROXINE SODIUM [Concomitant]
  4. VENLAFAXINE HCL [Concomitant]
  5. CALCIUM (CALCIUM) [Concomitant]
  6. PRASTERONE (PRASTERONE) [Concomitant]

REACTIONS (15)
  - CHEST DISCOMFORT [None]
  - CHEST PAIN [None]
  - CLUTTERING [None]
  - DIFFICULTY IN WALKING [None]
  - DYSARTHRIA [None]
  - DYSPEPSIA [None]
  - EYE DISORDER [None]
  - HYPERTENSION [None]
  - INSOMNIA [None]
  - MENTAL DISORDER [None]
  - PSYCHOMOTOR HYPERACTIVITY [None]
  - RASH ERYTHEMATOUS [None]
  - RASH PRURITIC [None]
  - TONGUE DISORDER [None]
  - VENTRICULAR EXTRASYSTOLES [None]
